FAERS Safety Report 20642027 (Version 1)
Quarter: 2022Q1

REPORT INFORMATION
  Report Type: Spontaneous
  Country: US (occurrence: US)
  Receive Date: 20220328
  Receipt Date: 20220328
  Transmission Date: 20220423
  Serious: No
  Sender: FDA-Public Use
  Company Number: ALC2021US003033

PATIENT
  Sex: Female

DRUGS (1)
  1. PATADAY ONCE DAILY RELIEF [Suspect]
     Active Substance: OLOPATADINE HYDROCHLORIDE
     Indication: Eye allergy
     Dosage: UNK QD
     Route: 047

REACTIONS (4)
  - Liquid product physical issue [Unknown]
  - Accidental exposure to product [Unknown]
  - Eye discharge [Recovered/Resolved]
  - Vision blurred [Recovered/Resolved]
